FAERS Safety Report 13465708 (Version 3)
Quarter: 2021Q4

REPORT INFORMATION
  Report Type: Spontaneous
  Country: BR (occurrence: None)
  Receive Date: 20170421
  Receipt Date: 20211222
  Transmission Date: 20220303
  Serious: Yes (Other)
  Sender: FDA-Public Use
  Company Number: BR-ROCHE-1919562

PATIENT
  Age: 61 Year
  Sex: Female
  Weight: 60 kg

DRUGS (2)
  1. XELODA [Suspect]
     Active Substance: CAPECITABINE
     Indication: Breast cancer metastatic
     Route: 048
     Dates: start: 20161212, end: 20170204
  2. PACLITAXEL [Concomitant]
     Active Substance: PACLITAXEL
     Dates: start: 201608

REACTIONS (15)
  - Genital injury [Unknown]
  - Anal injury [Unknown]
  - Skin exfoliation [Unknown]
  - Skin discolouration [Unknown]
  - Colitis [Unknown]
  - Condition aggravated [Unknown]
  - Drug ineffective [Unknown]
  - Malaise [Unknown]
  - Pain [Unknown]
  - Colitis [Unknown]
  - Vulvovaginal injury [Recovered/Resolved]
  - Tongue exfoliation [Recovered/Resolved]
  - Tongue discolouration [Recovered/Resolved]
  - Proctalgia [Not Recovered/Not Resolved]
  - Vulvovaginal discomfort [Not Recovered/Not Resolved]

NARRATIVE: CASE EVENT DATE: 20170101
